FAERS Safety Report 25728607 (Version 1)
Quarter: 2025Q3

REPORT INFORMATION
  Report Type: Spontaneous
  Country: US (occurrence: None)
  Receive Date: 20250820
  Receipt Date: 20250820
  Transmission Date: 20251021
  Serious: Yes (Other)
  Sender: FDA-CTU
  Company Number: None

PATIENT
  Age: 62 Year
  Sex: Female
  Weight: 62.1 kg

DRUGS (5)
  1. GLYCERIN\HYALURONIC ACID [Suspect]
     Active Substance: GLYCERIN\HYALURONIC ACID
     Indication: Skin wrinkling
     Route: 058
     Dates: start: 20250524, end: 20250607
  2. GLYCERIN\HYALURONIC ACID [Suspect]
     Active Substance: GLYCERIN\HYALURONIC ACID
     Indication: Skin wrinkling
     Route: 058
     Dates: start: 20250524, end: 20250807
  3. SYNTHROID [Concomitant]
     Active Substance: LEVOTHYROXINE SODIUM
  4. AMITRIPTYLINE HYDROCHLORIDE [Concomitant]
     Active Substance: AMITRIPTYLINE HYDROCHLORIDE
  5. VITAMINS [Concomitant]
     Active Substance: VITAMINS

REACTIONS (4)
  - Visual impairment [None]
  - Blindness [None]
  - Visual field defect [None]
  - Retinal detachment [None]

NARRATIVE: CASE EVENT DATE: 20250611
